FAERS Safety Report 15216857 (Version 1)
Quarter: 2018Q3

REPORT INFORMATION
  Report Type: Report from Study
  Country: US (occurrence: US)
  Receive Date: 20180730
  Receipt Date: 20180730
  Transmission Date: 20181010
  Serious: Yes (Hospitalization)
  Sender: FDA-Public Use
  Company Number: US-ACTELION-A-NJ2018-176463

PATIENT
  Age: 81 Year
  Sex: Female
  Weight: 61.68 kg

DRUGS (1)
  1. OPSUMIT [Suspect]
     Active Substance: MACITENTAN
     Indication: PULMONARY ARTERIAL HYPERTENSION
     Dosage: 10 MG, QD
     Route: 048

REACTIONS (9)
  - Syncope [Unknown]
  - Pulmonary arterial pressure increased [Unknown]
  - Blood pressure decreased [Unknown]
  - Pneumonia [Unknown]
  - Dehydration [Unknown]
  - Chest pain [Unknown]
  - Productive cough [Unknown]
  - Pulmonary embolism [Unknown]
  - Electrocardiogram abnormal [Unknown]
